FAERS Safety Report 19272852 (Version 12)
Quarter: 2021Q4

REPORT INFORMATION
  Report Type: Spontaneous
  Country: GB (occurrence: GB)
  Receive Date: 20210519
  Receipt Date: 20211123
  Transmission Date: 20220303
  Serious: Yes (Death, Other)
  Sender: FDA-Public Use
  Company Number: GB-LICONSA-2020-007763

PATIENT
  Age: 68 Year
  Sex: Male

DRUGS (11)
  1. ATORVASTATIN [Suspect]
     Active Substance: ATORVASTATIN
     Indication: Product used for unknown indication
     Dosage: UNIT DOSE 20 MG ,ATORVASTATIN 20 MG UNKNOWN, ATORVASTATIN LABORATORIOS LICONSA 20 MG
     Route: 065
  2. ATORVASTATIN [Suspect]
     Active Substance: ATORVASTATIN
     Indication: Product used for unknown indication
     Dosage: ATORVASTATIN 20 MG UNKNOWN
     Route: 065
  3. ASPIRIN [Suspect]
     Active Substance: ASPIRIN
     Indication: Product used for unknown indication
     Dosage: ACETYLSALICYLIC ACID 75 MG UNKNOWN
     Route: 065
  4. ASPIRIN [Suspect]
     Active Substance: ASPIRIN
     Dosage: ACETYLSALICYLIC ACID 75 MG UNKNOWN
     Route: 065
  5. BISOPROLOL [Suspect]
     Active Substance: BISOPROLOL
     Indication: Product used for unknown indication
     Dosage: BISOPROLOL 2.5 MG UNKNOWN
     Route: 065
  6. OMEPRAZOLE [Suspect]
     Active Substance: OMEPRAZOLE
     Indication: Product used for unknown indication
     Dosage: 20 MILLIGRAM,OMEPRAZOLE 20 MG UNKNOWN
     Route: 065
  7. ASPIRIN [Suspect]
     Active Substance: ASPIRIN
     Indication: Product used for unknown indication
  8. OMEPRAZOLE [Suspect]
     Active Substance: OMEPRAZOLE
     Indication: Product used for unknown indication
     Dosage: STRENGTH - 20 MILLIGRAM
     Route: 065
  9. OMEPRAZOLE [Suspect]
     Active Substance: OMEPRAZOLE
     Indication: Product used for unknown indication
     Route: 065
  10. BISOPROLOL FUMARATE [Suspect]
     Active Substance: BISOPROLOL FUMARATE
     Indication: Product used for unknown indication
  11. ASPIRIN [Suspect]
     Active Substance: ASPIRIN
     Indication: Product used for unknown indication

REACTIONS (5)
  - Death [Fatal]
  - Product dose omission issue [Fatal]
  - Product dispensing error [Fatal]
  - Product storage error [Fatal]
  - Death [Fatal]

NARRATIVE: CASE EVENT DATE: 20200424
